FAERS Safety Report 7942124-8 (Version None)
Quarter: 2011Q4

REPORT INFORMATION
  Report Type: 
  Country: None (occurrence: None)
  Receive Date: 20111128
  Receipt Date: 20111122
  Transmission Date: 20120403
  Serious: Yes (Death, Hospitalization)
  Sender: FDA-Public Use
  Company Number: FR-PFIZER INC-2011285003

PATIENT
  Age: 80 Year
  Sex: Male

DRUGS (9)
  1. SIMVASTATIN [Suspect]
     Dosage: 20 MG, 1X/DAY
     Route: 048
     Dates: end: 20110922
  2. AMARYL [Suspect]
     Dosage: 3 MG, 1X/DAY
     Route: 048
     Dates: end: 20110922
  3. PREVISCAN [Suspect]
     Indication: ATRIAL FIBRILLATION
     Dosage: UNK
     Route: 048
     Dates: start: 20110902, end: 20110922
  4. BISOPROLOL FUMARATE [Suspect]
     Dosage: 2.5 MG, 2X/DAY
     Route: 048
     Dates: end: 20110922
  5. INSULIN [Suspect]
     Route: 058
  6. XALATAN [Suspect]
     Dosage: 1 GTT, 1X/DAY
     Route: 047
     Dates: end: 20110922
  7. AMLODIPINE/VALSARTAN [Suspect]
     Dosage: 1 DF, UNK
     Route: 048
     Dates: end: 20110922
  8. TRIPTORELIN [Suspect]
     Dosage: 1 DF, EVERY 3 MONTHS
     Route: 030
     Dates: end: 20110922
  9. TAMSULOSIN HCL [Suspect]
     Dosage: 0.4 MG, 1X/DAY
     Route: 048
     Dates: end: 20110922

REACTIONS (3)
  - HEMIPLEGIA [None]
  - CEREBRAL HAEMATOMA [None]
  - COMA [None]
